FAERS Safety Report 25159157 (Version 1)
Quarter: 2025Q2

REPORT INFORMATION
  Report Type: Spontaneous
  Country: AU (occurrence: None)
  Receive Date: 20250404
  Receipt Date: 20250404
  Transmission Date: 20250717
  Serious: Yes (Other)
  Sender: INFORLIFE
  Company Number: AU-INFO-20250064

PATIENT
  Age: 75 Year
  Sex: Female

DRUGS (2)
  1. FLUCLOXACILLIN [Interacting]
     Active Substance: FLUCLOXACILLIN
     Indication: Staphylococcal bacteraemia
     Route: 042
  2. ACETAMINOPHEN [Interacting]
     Active Substance: ACETAMINOPHEN
     Indication: Back pain

REACTIONS (2)
  - Metabolic acidosis [Recovered/Resolved]
  - Drug interaction [Recovered/Resolved]
